FAERS Safety Report 16899858 (Version 2)
Quarter: 2020Q1

REPORT INFORMATION
  Report Type: Spontaneous
  Country: US (occurrence: US)
  Receive Date: 20191009
  Receipt Date: 20200115
  Transmission Date: 20200409
  Serious: Yes (Other)
  Sender: FDA-Public Use
  Company Number: US-ASTRAZENECA-2019SF41546

PATIENT
  Sex: Male
  Weight: 70.8 kg

DRUGS (1)
  1. CRESTOR [Suspect]
     Active Substance: ROSUVASTATIN CALCIUM
     Indication: BLOOD CHOLESTEROL
     Route: 048
     Dates: start: 2013

REACTIONS (4)
  - Paraesthesia [Unknown]
  - Neck pain [Unknown]
  - Autoimmune hepatitis [Unknown]
  - Fatigue [Unknown]
